FAERS Safety Report 6347260-8 (Version None)
Quarter: 2009Q3

REPORT INFORMATION
  Report Type: 
  Country: None (occurrence: None)
  Receive Date: 20090910
  Receipt Date: 20090902
  Transmission Date: 20100115
  Serious: Yes (Hospitalization)
  Sender: FDA-Public Use
  Company Number: US-BRISTOL-MYERS SQUIBB COMPANY-14721062

PATIENT
  Age: 44 Year
  Sex: Female

DRUGS (6)
  1. ARIPIPRAZOLE [Suspect]
     Indication: SCHIZOPHRENIA
     Dosage: 10MG/D;ORAL,20JUL09
     Route: 030
     Dates: start: 20090709, end: 20090709
  2. MILK OF MAGNESIA TAB [Concomitant]
     Indication: CONSTIPATION
     Route: 048
     Dates: start: 20090720, end: 20090727
  3. MAALOX PLUS [Concomitant]
     Indication: DYSPEPSIA
     Dosage: 16HR
     Route: 048
     Dates: start: 20090720, end: 20090727
  4. LOPERAMIDE [Concomitant]
     Indication: DIARRHOEA
     Route: 048
     Dates: start: 20090720, end: 20090727
  5. OLANZAPINE [Concomitant]
     Indication: AGITATION
     Route: 048
     Dates: start: 20090720, end: 20090727
  6. OLANZAPINE [Concomitant]
     Indication: PSYCHOTIC DISORDER
     Route: 048
     Dates: start: 20090720, end: 20090727

REACTIONS (1)
  - SCHIZOPHRENIA [None]
